FAERS Safety Report 10589623 (Version 1)
Quarter: 2014Q4

REPORT INFORMATION
  Report Type: Spontaneous
  Country: GB (occurrence: GB)
  Receive Date: 20141118
  Receipt Date: 20141118
  Transmission Date: 20150529
  Serious: Yes (Hospitalization, Other)
  Sender: FDA-Public Use
  Company Number: GB-TEVA-522525ISR

PATIENT
  Sex: Male

DRUGS (2)
  1. PREDNISOLONE. [Suspect]
     Active Substance: PREDNISOLONE
     Dosage: PREDNISOLONE RAN OUT AND DOCTOR DID NOT PRESCRIBE ANY MORE DRUG
     Dates: start: 20140829, end: 20140922
  2. PREDNISOLONE. [Suspect]
     Active Substance: PREDNISOLONE
     Dosage: HIGH DOSE THAT WAS TAPERED DOWN TO NOTHING

REACTIONS (1)
  - Steroid withdrawal syndrome [Unknown]
